FAERS Safety Report 23761583 (Version 1)
Quarter: 2024Q2

REPORT INFORMATION
  Report Type: Spontaneous
  Country: US (occurrence: None)
  Receive Date: 20240418
  Receipt Date: 20240418
  Transmission Date: 20240715
  Serious: No
  Sender: FDA-Public Use
  Company Number: None

PATIENT
  Age: 43 Year
  Sex: Female
  Weight: 85.5 kg

DRUGS (1)
  1. CIPROFLOXACIN [Suspect]
     Active Substance: CIPROFLOXACIN
     Indication: Urinary tract infection
     Dates: start: 20240417, end: 20240418

REACTIONS (5)
  - Insomnia [None]
  - Migraine [None]
  - Anxiety [None]
  - Nausea [None]
  - Adverse drug reaction [None]

NARRATIVE: CASE EVENT DATE: 20240418
